FAERS Safety Report 5534221-1 (Version None)
Quarter: 2007Q4

REPORT INFORMATION
  Report Type: 
  Country: None (occurrence: None)
  Receive Date: 20071205
  Receipt Date: 20071126
  Transmission Date: 20080405
  Serious: No
  Sender: FDA-Public Use
  Company Number: US-BAYER-US-2007-039569

PATIENT
  Age: 41 Year
  Sex: Female
  Weight: 59 kg

DRUGS (7)
  1. YASMIN [Suspect]
     Indication: OOCYTE HARVEST
     Route: 048
     Dates: start: 20070801, end: 20071001
  2. LUPRON [Concomitant]
  3. DHA [Concomitant]
  4. DEXAMETHASONE TAB [Concomitant]
  5. PRENATAL VITAMINS [Concomitant]
  6. FOLLISTIM [Concomitant]
  7. MENOPUR [Concomitant]

REACTIONS (1)
  - INFERTILITY FEMALE [None]
